FAERS Safety Report 7958218-7 (Version None)
Quarter: 2011Q4

REPORT INFORMATION
  Report Type: 
  Country: None (occurrence: None)
  Receive Date: 20111205
  Receipt Date: 20111128
  Transmission Date: 20120403
  Serious: Yes (Other)
  Sender: FDA-Public Use
  Company Number: US-ROCHE-1010337

PATIENT
  Sex: Male
  Weight: 90.8 kg

DRUGS (3)
  1. TELAPREVIR [Suspect]
     Indication: HEPATITIS C
  2. COPEGUS [Suspect]
     Indication: HEPATITIS C
     Dosage: TO BE GIVEN IN DIVIDED DOSES.
     Dates: start: 20110819
  3. PEGINTERFERON ALFA-2A [Suspect]
     Indication: HEPATITIS C
     Dates: start: 20110819

REACTIONS (4)
  - ANAEMIA [None]
  - EPISTAXIS [None]
  - PYREXIA [None]
  - HAEMOPTYSIS [None]
